FAERS Safety Report 5765897-1 (Version None)
Quarter: 2008Q2

REPORT INFORMATION
  Report Type: 
  Country: None (occurrence: None)
  Receive Date: 20080606
  Receipt Date: 20080602
  Transmission Date: 20081010
  Serious: Yes (Hospitalization)
  Sender: FDA-Public Use
  Company Number: 2008SP010019

PATIENT
  Age: 79 Year
  Sex: Female
  Weight: 53.6 kg

DRUGS (5)
  1. TEMODAR [Suspect]
     Indication: ACUTE MYELOID LEUKAEMIA
     Dosage: 160 MG; QD; PO, 320 MG; QD; PO
     Route: 048
     Dates: start: 20080430, end: 20080513
  2. TEMODAR [Suspect]
     Indication: ACUTE MYELOID LEUKAEMIA
     Dosage: 160 MG; QD; PO, 320 MG; QD; PO
     Route: 048
     Dates: start: 20080514, end: 20080520
  3. LISINOPRIL [Concomitant]
  4. CIPRO [Concomitant]
  5. FLAGYL [Concomitant]

REACTIONS (23)
  - ABDOMINAL PAIN [None]
  - ATELECTASIS [None]
  - COAGULOPATHY [None]
  - DIARRHOEA [None]
  - DIVERTICULUM [None]
  - EFFUSION [None]
  - HEPATOSPLENOMEGALY [None]
  - HYPONATRAEMIA [None]
  - INFECTION [None]
  - LEUKOSTASIS [None]
  - LUNG CONSOLIDATION [None]
  - LUNG DISORDER [None]
  - NAUSEA [None]
  - NIGHT SWEATS [None]
  - PETECHIAE [None]
  - POLYDIPSIA [None]
  - PYREXIA [None]
  - RASH MACULO-PAPULAR [None]
  - RENAL INFARCT [None]
  - SPLENIC INFARCTION [None]
  - SPLENOMEGALY [None]
  - THROMBOCYTOPENIA [None]
  - VOMITING [None]
